FAERS Safety Report 25902231 (Version 2)
Quarter: 2025Q4

REPORT INFORMATION
  Report Type: Spontaneous
  Country: JP (occurrence: JP)
  Receive Date: 20251009
  Receipt Date: 20251111
  Transmission Date: 20260117
  Serious: Yes (Hospitalization)
  Sender: MYLAN
  Company Number: JP-MYE-2025M1079180AA

PATIENT
  Age: 85 Year
  Sex: Female
  Weight: 43.8 kg

DRUGS (40)
  1. TACROLIMUS [Suspect]
     Active Substance: TACROLIMUS
     Indication: Rheumatoid arthritis
     Dosage: 2 MILLIGRAM, QD
     Route: 048
     Dates: end: 20250919
  2. TACROLIMUS [Suspect]
     Active Substance: TACROLIMUS
     Indication: Dermatomyositis
     Dosage: 2 MILLIGRAM, QD
     Dates: end: 20250919
  3. TACROLIMUS [Suspect]
     Active Substance: TACROLIMUS
     Dosage: 2 MILLIGRAM, QD
     Dates: end: 20250919
  4. TACROLIMUS [Suspect]
     Active Substance: TACROLIMUS
     Dosage: 2 MILLIGRAM, QD
     Route: 048
     Dates: end: 20250919
  5. TACROLIMUS [Suspect]
     Active Substance: TACROLIMUS
     Dosage: DOSE DECREASED
     Route: 048
     Dates: start: 20250920, end: 20250922
  6. TACROLIMUS [Suspect]
     Active Substance: TACROLIMUS
     Dosage: DOSE DECREASED
     Dates: start: 20250920, end: 20250922
  7. TACROLIMUS [Suspect]
     Active Substance: TACROLIMUS
     Dosage: DOSE DECREASED
     Dates: start: 20250920, end: 20250922
  8. TACROLIMUS [Suspect]
     Active Substance: TACROLIMUS
     Dosage: DOSE DECREASED
     Route: 048
     Dates: start: 20250920, end: 20250922
  9. TACROLIMUS [Suspect]
     Active Substance: TACROLIMUS
     Dosage: 2 MILLIGRAM, QD
     Route: 048
     Dates: start: 20250923
  10. TACROLIMUS [Suspect]
     Active Substance: TACROLIMUS
     Dosage: 2 MILLIGRAM, QD
     Route: 048
     Dates: start: 20250923
  11. TACROLIMUS [Suspect]
     Active Substance: TACROLIMUS
     Dosage: 2 MILLIGRAM, QD
     Dates: start: 20250923
  12. TACROLIMUS [Suspect]
     Active Substance: TACROLIMUS
     Dosage: 2 MILLIGRAM, QD
     Dates: start: 20250923
  13. PAXLOVID [Suspect]
     Active Substance: NIRMATRELVIR\RITONAVIR
     Indication: COVID-19
     Dosage: 300 MILLIGRAM, BID
     Dates: start: 20250909, end: 20250913
  14. PAXLOVID [Suspect]
     Active Substance: NIRMATRELVIR\RITONAVIR
     Dosage: 300 MILLIGRAM, BID
     Route: 048
     Dates: start: 20250909, end: 20250913
  15. PAXLOVID [Suspect]
     Active Substance: NIRMATRELVIR\RITONAVIR
     Dosage: 300 MILLIGRAM, BID
     Route: 048
     Dates: start: 20250909, end: 20250913
  16. PAXLOVID [Suspect]
     Active Substance: NIRMATRELVIR\RITONAVIR
     Dosage: 300 MILLIGRAM, BID
     Dates: start: 20250909, end: 20250913
  17. MIYA-BM [Concomitant]
     Active Substance: CLOSTRIDIUM BUTYRICUM SPORES STRAIN M-55
     Indication: Diarrhoea
     Dosage: UNK, TID
     Dates: start: 20250904
  18. MIYA-BM [Concomitant]
     Active Substance: CLOSTRIDIUM BUTYRICUM SPORES STRAIN M-55
     Dosage: UNK, TID
     Route: 048
     Dates: start: 20250904
  19. MIYA-BM [Concomitant]
     Active Substance: CLOSTRIDIUM BUTYRICUM SPORES STRAIN M-55
     Dosage: UNK, TID
     Route: 048
     Dates: start: 20250904
  20. MIYA-BM [Concomitant]
     Active Substance: CLOSTRIDIUM BUTYRICUM SPORES STRAIN M-55
     Dosage: UNK, TID
     Dates: start: 20250904
  21. ATORVASTATIN [Concomitant]
     Active Substance: ATORVASTATIN
     Indication: Dyslipidaemia
     Dosage: 10 MILLIGRAM, QD
     Dates: start: 20250904
  22. ATORVASTATIN [Concomitant]
     Active Substance: ATORVASTATIN
     Dosage: 10 MILLIGRAM, QD
     Route: 048
     Dates: start: 20250904
  23. ATORVASTATIN [Concomitant]
     Active Substance: ATORVASTATIN
     Dosage: 10 MILLIGRAM, QD
     Route: 048
     Dates: start: 20250904
  24. ATORVASTATIN [Concomitant]
     Active Substance: ATORVASTATIN
     Dosage: 10 MILLIGRAM, QD
     Dates: start: 20250904
  25. LEVOTHYROXINE [Concomitant]
     Active Substance: LEVOTHYROXINE
     Indication: Hypothyroidism
     Dosage: 10 MICROGRAM, QD
     Dates: start: 20250904
  26. LEVOTHYROXINE [Concomitant]
     Active Substance: LEVOTHYROXINE
     Dosage: 10 MICROGRAM, QD
     Route: 048
     Dates: start: 20250904
  27. LEVOTHYROXINE [Concomitant]
     Active Substance: LEVOTHYROXINE
     Dosage: 10 MICROGRAM, QD
     Route: 048
     Dates: start: 20250904
  28. LEVOTHYROXINE [Concomitant]
     Active Substance: LEVOTHYROXINE
     Dosage: 10 MICROGRAM, QD
     Dates: start: 20250904
  29. VONOPRAZAN FUMARATE [Concomitant]
     Active Substance: VONOPRAZAN FUMARATE
     Indication: Gastrooesophageal reflux disease
     Dosage: 10 MILLIGRAM, QD
     Dates: start: 20250904
  30. VONOPRAZAN FUMARATE [Concomitant]
     Active Substance: VONOPRAZAN FUMARATE
     Dosage: 10 MILLIGRAM, QD
     Route: 048
     Dates: start: 20250904
  31. VONOPRAZAN FUMARATE [Concomitant]
     Active Substance: VONOPRAZAN FUMARATE
     Dosage: 10 MILLIGRAM, QD
     Route: 048
     Dates: start: 20250904
  32. VONOPRAZAN FUMARATE [Concomitant]
     Active Substance: VONOPRAZAN FUMARATE
     Dosage: 10 MILLIGRAM, QD
     Dates: start: 20250904
  33. DAYVIGO [Concomitant]
     Active Substance: LEMBOREXANT
     Indication: Insomnia
     Dosage: 5 MILLIGRAM, QD
     Dates: start: 20250904
  34. DAYVIGO [Concomitant]
     Active Substance: LEMBOREXANT
     Dosage: 5 MILLIGRAM, QD
     Route: 048
     Dates: start: 20250904
  35. DAYVIGO [Concomitant]
     Active Substance: LEMBOREXANT
     Dosage: 5 MILLIGRAM, QD
     Route: 048
     Dates: start: 20250904
  36. DAYVIGO [Concomitant]
     Active Substance: LEMBOREXANT
     Dosage: 5 MILLIGRAM, QD
     Dates: start: 20250904
  37. VIBEGRON [Concomitant]
     Active Substance: VIBEGRON
     Indication: Hypertonic bladder
     Dosage: 50 MILLIGRAM, QD
     Dates: start: 20250904
  38. VIBEGRON [Concomitant]
     Active Substance: VIBEGRON
     Dosage: 50 MILLIGRAM, QD
     Route: 048
     Dates: start: 20250904
  39. VIBEGRON [Concomitant]
     Active Substance: VIBEGRON
     Dosage: 50 MILLIGRAM, QD
     Route: 048
     Dates: start: 20250904
  40. VIBEGRON [Concomitant]
     Active Substance: VIBEGRON
     Dosage: 50 MILLIGRAM, QD
     Dates: start: 20250904

REACTIONS (4)
  - Drug level increased [Recovering/Resolving]
  - Diarrhoea [Recovering/Resolving]
  - Decreased appetite [Recovering/Resolving]
  - Renal disorder [Recovered/Resolved]

NARRATIVE: CASE EVENT DATE: 20250916
